FAERS Safety Report 5900041-9 (Version None)
Quarter: 2008Q3

REPORT INFORMATION
  Report Type: 
  Country: None (occurrence: None)
  Receive Date: 20080926
  Receipt Date: 20080919
  Transmission Date: 20090109
  Serious: Yes (Other)
  Sender: FDA-Public Use
  Company Number: JP-AVENTIS-200812975JP

PATIENT
  Age: 44 Year
  Sex: Female

DRUGS (2)
  1. LASIX [Suspect]
     Indication: SWELLING
     Route: 048
     Dates: start: 20080430
  2. FLUITRAN [Concomitant]
     Route: 048
     Dates: start: 20080430, end: 20080917

REACTIONS (2)
  - ARRHYTHMIA [None]
  - MUSCULOSKELETAL STIFFNESS [None]
